FAERS Safety Report 15933794 (Version 10)
Quarter: 2019Q4

REPORT INFORMATION
  Report Type: Spontaneous
  Country: US (occurrence: US)
  Receive Date: 20190207
  Receipt Date: 20191203
  Transmission Date: 20200122
  Serious: Yes (Hospitalization, Other)
  Sender: FDA-Public Use
  Company Number: US-PFIZER INC-2019048307

PATIENT
  Age: 58 Year
  Sex: Male
  Weight: 77 kg

DRUGS (27)
  1. NAPROXEN. [Suspect]
     Active Substance: NAPROXEN
     Indication: RHEUMATOID ARTHRITIS
  2. VIAGRA [Concomitant]
     Active Substance: SILDENAFIL CITRATE
     Dosage: UNK, AS NEEDED
     Dates: start: 2012
  3. SULFASALAZINE. [Suspect]
     Active Substance: SULFASALAZINE
     Indication: RHEUMATOID ARTHRITIS
  4. INDOCIN [Suspect]
     Active Substance: INDOMETHACIN
     Indication: RHEUMATOID ARTHRITIS
  5. ROSUVASTATIN. [Concomitant]
     Active Substance: ROSUVASTATIN
     Dosage: UNK
     Dates: start: 2012
  6. ENBREL [Suspect]
     Active Substance: ETANERCEPT
     Indication: ARTHRITIS
     Dosage: UNK
     Dates: start: 2012
  7. METHOTREXATE SODIUM. [Suspect]
     Active Substance: METHOTREXATE SODIUM
     Indication: RHEUMATOID ARTHRITIS
  8. INDOCIN [Suspect]
     Active Substance: INDOMETHACIN
     Indication: ARTHRITIS REACTIVE
  9. INDOCIN [Suspect]
     Active Substance: INDOMETHACIN
     Indication: ANKYLOSING SPONDYLITIS
  10. NAPROXEN. [Suspect]
     Active Substance: NAPROXEN
     Indication: ARTHRITIS REACTIVE
  11. NAPROXEN. [Suspect]
     Active Substance: NAPROXEN
     Indication: ANKYLOSING SPONDYLITIS
  12. ENBREL [Suspect]
     Active Substance: ETANERCEPT
     Indication: ANKYLOSING SPONDYLITIS
  13. SULFASALAZINE. [Suspect]
     Active Substance: SULFASALAZINE
     Indication: ANKYLOSING SPONDYLITIS
  14. CLOPIDOGREL [Concomitant]
     Active Substance: CLOPIDOGREL BISULFATE
     Dosage: UNK
     Dates: start: 2012
  15. ENBREL [Suspect]
     Active Substance: ETANERCEPT
     Indication: RHEUMATOID ARTHRITIS
  16. METHOTREXATE SODIUM. [Suspect]
     Active Substance: METHOTREXATE SODIUM
     Indication: ARTHRITIS REACTIVE
  17. METHOTREXATE SODIUM. [Suspect]
     Active Substance: METHOTREXATE SODIUM
     Indication: ANKYLOSING SPONDYLITIS
  18. SULFASALAZINE. [Suspect]
     Active Substance: SULFASALAZINE
     Indication: ARTHRITIS REACTIVE
  19. ACETYLSALICYLIC ACID [Concomitant]
     Active Substance: ASPIRIN
     Dosage: UNK
  20. SULFASALAZINE. [Suspect]
     Active Substance: SULFASALAZINE
     Indication: ARTHRITIS
     Dosage: UNK
     Dates: end: 2006
  21. ATENOLOL. [Concomitant]
     Active Substance: ATENOLOL
     Dosage: UNK
     Dates: start: 2012
  22. NAPROXEN. [Suspect]
     Active Substance: NAPROXEN
     Indication: ARTHRITIS
     Dosage: UNK
     Dates: end: 2006
  23. CYCLOBENZAPRINE. [Concomitant]
     Active Substance: CYCLOBENZAPRINE
     Dosage: UNK, AS NEEDED
     Dates: start: 2018
  24. ENBREL [Suspect]
     Active Substance: ETANERCEPT
     Indication: ARTHRITIS REACTIVE
  25. METHOTREXATE SODIUM. [Suspect]
     Active Substance: METHOTREXATE SODIUM
     Indication: ARTHRITIS
     Dosage: UNK
     Dates: start: 2012
  26. INDOCIN [Suspect]
     Active Substance: INDOMETHACIN
     Indication: ARTHRITIS
     Dosage: UNK
     Dates: end: 2006
  27. LOSARTAN. [Concomitant]
     Active Substance: LOSARTAN
     Dosage: UNK
     Dates: start: 2012

REACTIONS (20)
  - Musculoskeletal stiffness [Not Recovered/Not Resolved]
  - Hypotension [Recovered/Resolved]
  - Cervical vertebral fracture [Recovered/Resolved]
  - Diet refusal [Recovered/Resolved]
  - Renal failure [Recovered/Resolved]
  - Head injury [Recovered/Resolved]
  - Panic attack [Recovered/Resolved]
  - Fall [Recovered/Resolved]
  - Neck pain [Not Recovered/Not Resolved]
  - Barrett^s oesophagus [Recovered/Resolved]
  - Fear [Recovered/Resolved]
  - Anxiety [Recovered/Resolved]
  - Abdominal discomfort [Recovered/Resolved]
  - Diarrhoea [Recovered/Resolved]
  - Malaise [Recovered/Resolved]
  - Throat irritation [Recovered/Resolved]
  - Cough [Recovered/Resolved]
  - Post-traumatic stress disorder [Recovered/Resolved]
  - Body height decreased [Recovered/Resolved]
  - Depression [Recovered/Resolved]

NARRATIVE: CASE EVENT DATE: 20180312
